FAERS Safety Report 22271507 (Version 4)
Quarter: 2023Q2

REPORT INFORMATION
  Report Type: Spontaneous
  Country: US (occurrence: US)
  Receive Date: 20230501
  Receipt Date: 20230527
  Transmission Date: 20230721
  Serious: No
  Sender: FDA-Public Use
  Company Number: US-JNJFOC-20230454163

PATIENT
  Age: 72 Year
  Sex: Female
  Weight: 122.13 kg

DRUGS (14)
  1. TREMFYA [Suspect]
     Active Substance: GUSELKUMAB
     Indication: Psoriasis
     Route: 065
  2. SKELAXIN [Concomitant]
     Active Substance: METAXALONE
  3. AMLODIPINE [Concomitant]
     Active Substance: AMLODIPINE BESYLATE
  4. ZETIA [Concomitant]
     Active Substance: EZETIMIBE
  5. FUROSEMIDE [Concomitant]
     Active Substance: FUROSEMIDE
  6. LEVOTHYROXINE [Concomitant]
     Active Substance: LEVOTHYROXINE
     Dosage: 112
  7. PROTONIX [Concomitant]
     Active Substance: PANTOPRAZOLE SODIUM
  8. PREDNISONE [Concomitant]
     Active Substance: PREDNISONE
  9. AMIODARONE [Concomitant]
     Active Substance: AMIODARONE
  10. CANDESARTAN [Concomitant]
     Active Substance: CANDESARTAN
     Dosage: 1 TABLET PER DAY
  11. SPIRONOLACTONE [Concomitant]
     Active Substance: SPIRONOLACTONE
  12. POTCHLOR [Concomitant]
  13. JARDIANCE [Concomitant]
     Active Substance: EMPAGLIFLOZIN
  14. ATORVASTATIN [Concomitant]
     Active Substance: ATORVASTATIN

REACTIONS (4)
  - Product quality issue [Unknown]
  - Product dose omission issue [Unknown]
  - Accidental exposure to product [Unknown]
  - Psoriasis [Unknown]

NARRATIVE: CASE EVENT DATE: 20230422
